FAERS Safety Report 14139490 (Version 1)
Quarter: 2017Q4

REPORT INFORMATION
  Report Type: Spontaneous
  Country: US (occurrence: US)
  Receive Date: 20171028
  Receipt Date: 20171028
  Transmission Date: 20180321
  Serious: Yes (Hospitalization)
  Sender: FDA-Public Use
  Company Number: US-009507513-1710USA014384

PATIENT
  Age: 10 Year
  Sex: Female

DRUGS (3)
  1. NOXAFIL [Suspect]
     Active Substance: POSACONAZOLE
     Indication: MUCORMYCOSIS
     Dosage: 600 MG, ONCE
     Route: 042
     Dates: start: 20171025, end: 20171025
  2. AMPHOTERICIN B. [Concomitant]
     Active Substance: AMPHOTERICIN B
     Dosage: UNK
  3. NOXAFIL [Suspect]
     Active Substance: POSACONAZOLE
     Dosage: 600 MG, ONCE DAILY
     Route: 042
     Dates: start: 20171026

REACTIONS (6)
  - Overdose [Unknown]
  - Visual impairment [Not Recovered/Not Resolved]
  - Adverse event [Not Recovered/Not Resolved]
  - Chills [Not Recovered/Not Resolved]
  - Product use in unapproved indication [Unknown]
  - Tremor [Not Recovered/Not Resolved]

NARRATIVE: CASE EVENT DATE: 201710
